FAERS Safety Report 24647532 (Version 1)
Quarter: 2024Q4

REPORT INFORMATION
  Report Type: Spontaneous
  Country: US (occurrence: US)
  Receive Date: 20241121
  Receipt Date: 20241121
  Transmission Date: 20250115
  Serious: Yes (Hospitalization)
  Sender: NOVARTIS
  Company Number: US-002147023-NVSC2024US220557

PATIENT
  Sex: Female

DRUGS (1)
  1. PIQRAY [Suspect]
     Active Substance: ALPELISIB
     Indication: Breast cancer female
     Dosage: 250 MG, QD
     Route: 048
     Dates: start: 20240828

REACTIONS (4)
  - Diarrhoea [Recovered/Resolved]
  - Haematological infection [Unknown]
  - Clostridium difficile infection [Unknown]
  - Expired product administered [Unknown]
